FAERS Safety Report 9084499 (Version 2)
Quarter: 2013Q2

REPORT INFORMATION
  Report Type: Spontaneous
  Country: US (occurrence: US)
  Receive Date: 20130130
  Receipt Date: 20130410
  Transmission Date: 20140414
  Serious: Yes (Hospitalization, Other)
  Sender: FDA-Public Use
  Company Number: US-ALEXION-A201300081

PATIENT
  Age: 28 Year
  Sex: Female
  Weight: 109.4 kg

DRUGS (18)
  1. SOLIRIS 300MG [Suspect]
     Indication: HAEMOLYTIC URAEMIC SYNDROME
     Dosage: 900 MG, QW
     Route: 042
     Dates: start: 20120316, end: 20130125
  2. SOLIRIS 300MG [Suspect]
     Dosage: 1200 MG, Q2W
     Route: 042
  3. VALIUM [Suspect]
  4. NIFEDIPINE [Concomitant]
     Dosage: 90 MG, QD
     Route: 048
  5. LACTULOSE [Concomitant]
     Dosage: 30 MG, PRN
     Route: 048
  6. IRON POLYSACCHARIDE [Concomitant]
     Indication: SUPPLEMENTATION THERAPY
     Dosage: UNK UNK, QD
     Route: 048
  7. HYDRALAZINE [Concomitant]
     Dosage: 25 MG, BID
     Route: 048
  8. FUROSEMIDE [Concomitant]
     Dosage: 80 MG, BID
     Route: 048
  9. DOCUSATE [Concomitant]
     Dosage: 100 MG, TID
     Route: 048
  10. CLONIDINE [Concomitant]
     Dosage: 0.3 MG, QD
     Route: 048
  11. CITALOPRAM [Concomitant]
     Dosage: 20 MG, QD
     Route: 048
  12. CARVEDILOL [Concomitant]
     Dosage: 25 MG, TID
     Route: 048
  13. B COMPLEX [Concomitant]
     Indication: SUPPLEMENTATION THERAPY
     Dosage: UNK UNK, QD
     Route: 048
  14. POTASSIUM CHLORIDE [Concomitant]
     Dosage: 20 MEQ, TID
     Route: 048
  15. PREDNISONE [Concomitant]
     Dosage: 20 MG, QD
     Route: 048
  16. PRILOSEC [Concomitant]
     Dosage: 20 MG, BID
     Route: 048
  17. ANTIDEPRESSANTS [Concomitant]
  18. TRAMADOL [Concomitant]

REACTIONS (27)
  - Pyrexia [Unknown]
  - Immunosuppression [Unknown]
  - Ejection fraction decreased [Unknown]
  - Renal failure [Unknown]
  - Cardiac failure [Unknown]
  - Cardiac disorder [Unknown]
  - Fall [Recovered/Resolved with Sequelae]
  - Fibula fracture [Not Recovered/Not Resolved]
  - Dyspnoea [Unknown]
  - Psychotic disorder [Not Recovered/Not Resolved]
  - Hyperthyroidism [Unknown]
  - Abdominal pain [Unknown]
  - Fluid retention [Unknown]
  - Dizziness postural [Recovered/Resolved]
  - Sinusitis [Unknown]
  - Sedation [Unknown]
  - Hiatus hernia [Unknown]
  - Blood lactate dehydrogenase increased [Unknown]
  - Oedema peripheral [Unknown]
  - Tachycardia [Unknown]
  - Myalgia [Unknown]
  - Gastrooesophageal reflux disease [Unknown]
  - Chest pain [Unknown]
  - Haemolysis [Unknown]
  - Thrombocytopenia [Unknown]
  - Depression [Unknown]
  - Anxiety [Unknown]
